FAERS Safety Report 11689737 (Version 1)
Quarter: 2015Q4

REPORT INFORMATION
  Report Type: Spontaneous
  Country: US (occurrence: None)
  Receive Date: 20151030
  Receipt Date: 20151030
  Transmission Date: 20160304
  Serious: No
  Sender: FDA-Public Use
  Company Number: None

PATIENT
  Age: 60 Year
  Sex: Female
  Weight: 67 kg

DRUGS (9)
  1. IBRANCE [Suspect]
     Active Substance: PALBOCICLIB
     Indication: BREAST CANCER
     Route: 048
     Dates: start: 20150923, end: 20151006
  2. GABAPENTIN. [Concomitant]
     Active Substance: GABAPENTIN
  3. MELATONIN [Concomitant]
     Active Substance: MELATONIN
  4. DICLOFENAC GEL [Concomitant]
  5. PREDNISONE. [Concomitant]
     Active Substance: PREDNISONE
  6. XGEVA [Concomitant]
     Active Substance: DENOSUMAB
  7. AROMASIN [Suspect]
     Active Substance: EXEMESTANE
     Indication: BREAST CANCER
     Route: 048
     Dates: start: 20150923, end: 20151006
  8. IBUPROFEN. [Concomitant]
     Active Substance: IBUPROFEN
  9. CALCIUM WITH D [Concomitant]
     Active Substance: CALCIUM\VITAMIN D

REACTIONS (14)
  - Rash [None]
  - Pain in extremity [None]
  - Jaundice [None]
  - Diarrhoea [None]
  - Somnolence [None]
  - Feeling abnormal [None]
  - Vomiting [None]
  - Dizziness [None]
  - Bone pain [None]
  - Chromaturia [None]
  - Fatigue [None]
  - Nausea [None]
  - Chills [None]
  - Blood bilirubin increased [None]

NARRATIVE: CASE EVENT DATE: 20151007
